FAERS Safety Report 18996674 (Version 1)
Quarter: 2021Q1

REPORT INFORMATION
  Report Type: Spontaneous
  Country: NL (occurrence: NL)
  Receive Date: 20210311
  Receipt Date: 20210311
  Transmission Date: 20210420
  Serious: Yes (Other)
  Sender: FDA-Public Use
  Company Number: NL-TEVA-2021-NL-1888803

PATIENT
  Age: 72 Year
  Sex: Female

DRUGS (1)
  1. PALIPERIDON RETARD TEVA 6 MG [Suspect]
     Active Substance: PALIPERIDONE
     Dosage: 6 MILLIGRAM DAILY;
     Route: 065
     Dates: start: 202102, end: 2021

REACTIONS (10)
  - Oedema [Recovering/Resolving]
  - Intraocular pressure increased [Recovering/Resolving]
  - Pruritus [Recovering/Resolving]
  - Constipation [Recovering/Resolving]
  - Gastrointestinal infection [Recovering/Resolving]
  - Body temperature decreased [Recovering/Resolving]
  - Pneumonia [Recovering/Resolving]
  - Hypertension [Recovering/Resolving]
  - Dry skin [Recovering/Resolving]
  - Salivary hypersecretion [Recovering/Resolving]

NARRATIVE: CASE EVENT DATE: 2021
